FAERS Safety Report 10244234 (Version 4)
Quarter: 2014Q4

REPORT INFORMATION
  Report Type: Spontaneous
  Country: US (occurrence: US)
  Receive Date: 20140618
  Receipt Date: 20141229
  Transmission Date: 20150528
  Serious: Yes (Hospitalization, Disabling, Other)
  Sender: FDA-Public Use
  Company Number: US-009507513-1406USA007998

PATIENT
  Sex: Female
  Weight: 71.2 kg

DRUGS (5)
  1. FOSAMAX [Suspect]
     Active Substance: ALENDRONATE SODIUM
     Dosage: UNK
     Route: 048
     Dates: end: 201109
  2. FOSAMAX [Suspect]
     Active Substance: ALENDRONATE SODIUM
     Indication: OSTEOPOROSIS
     Dosage: 10 MG, UNK
     Route: 048
     Dates: start: 1995, end: 2009
  3. PRILOSEC [Concomitant]
     Active Substance: OMEPRAZOLE MAGNESIUM
     Dosage: UNK
     Route: 048
     Dates: start: 199311
  4. DIDRONEL [Concomitant]
     Active Substance: ETIDRONATE DISODIUM
     Indication: OSTEOPOROSIS
     Dosage: UNK
     Dates: start: 1994, end: 19990419
  5. ALENDRONATE SODIUM. [Suspect]
     Active Substance: ALENDRONATE SODIUM
     Indication: OSTEOPOROSIS
     Dosage: 70 MG, UNK
     Route: 048
     Dates: start: 200912, end: 201107

REACTIONS (47)
  - Foot fracture [Unknown]
  - Fracture [Unknown]
  - Impaired healing [Not Recovered/Not Resolved]
  - Corneal abrasion [Unknown]
  - Ligament operation [Unknown]
  - Anxiety [Unknown]
  - Family stress [Unknown]
  - Back pain [Unknown]
  - Shoulder arthroplasty [Unknown]
  - Migraine [Unknown]
  - Insomnia [Unknown]
  - Intramedullary rod insertion [Unknown]
  - Gingivectomy [Unknown]
  - Diverticulum [Unknown]
  - Haemoglobin decreased [Unknown]
  - Femur fracture [Unknown]
  - Rotator cuff syndrome [Unknown]
  - Meniscus removal [Unknown]
  - Spinal disorder [Unknown]
  - Rotator cuff repair [Unknown]
  - Osteoporosis [Unknown]
  - Depression [Unknown]
  - Stress urinary incontinence [Recovered/Resolved]
  - Osteomalacia [Unknown]
  - Radius fracture [Unknown]
  - Closed fracture manipulation [Unknown]
  - Rib fracture [Recovering/Resolving]
  - Joint dislocation [Unknown]
  - Ligament rupture [Unknown]
  - Increased tendency to bruise [Unknown]
  - Bladder neck suspension [Unknown]
  - Benign neoplasm [Unknown]
  - Enthesopathy [Unknown]
  - Foot fracture [Unknown]
  - Impaired healing [Not Recovered/Not Resolved]
  - Periodontal operation [Unknown]
  - Osteopenia [Unknown]
  - Sleep apnoea syndrome [Recovered/Resolved]
  - Tonsillectomy [Unknown]
  - Meniscus removal [Unknown]
  - Disability [Not Recovered/Not Resolved]
  - Foot fracture [Unknown]
  - Poor quality sleep [Unknown]
  - Temporomandibular joint syndrome [Unknown]
  - Hypertension [Unknown]
  - Haemorrhoids [Unknown]
  - Balance disorder [Unknown]

NARRATIVE: CASE EVENT DATE: 199506
